FAERS Safety Report 10683084 (Version 1)
Quarter: 2014Q4

REPORT INFORMATION
  Report Type: Spontaneous
  Country: US (occurrence: None)
  Receive Date: 20141212
  Receipt Date: 20141212
  Transmission Date: 20150529
  Serious: Yes (Hospitalization)
  Sender: FDA-Public Use
  Company Number: 1427375

PATIENT
  Sex: Female

DRUGS (5)
  1. VALIUM [Suspect]
     Active Substance: DIAZEPAM
     Indication: SEIZURE
  2. CLONAZEPAM. [Suspect]
     Active Substance: CLONAZEPAM
     Indication: SEIZURE
     Dosage: STARTED GENERIC EARLIER THIS YEAR (1MG, 2 IN 1 D), UNKNOWN
  3. CLONAZEPAM. [Suspect]
     Active Substance: CLONAZEPAM
     Indication: MIGRAINE
     Dosage: STARTED GENERIC EARLIER THIS YEAR (1MG, 2 IN 1 D), UNKNOWN
  4. CLONAZEPAM. [Suspect]
     Active Substance: CLONAZEPAM
     Indication: FRONTAL LOBE EPILEPSY
     Dosage: STARTED GENERIC EARLIER THIS YEAR (1MG, 2 IN 1 D), UNKNOWN
  5. TEMAZEPAM (TEMAZEPAM) [Concomitant]
     Active Substance: TEMAZEPAM

REACTIONS (2)
  - Feeling abnormal [None]
  - Fatigue [None]
